FAERS Safety Report 13692449 (Version 1)
Quarter: 2017Q2

REPORT INFORMATION
  Report Type: Spontaneous
  Country: US (occurrence: US)
  Receive Date: 20170627
  Receipt Date: 20170627
  Transmission Date: 20170830
  Serious: No
  Sender: FDA-Public Use
  Company Number: US-TEVA-763111ACC

PATIENT
  Sex: Female
  Weight: 99.79 kg

DRUGS (11)
  1. STOOL SOFTENER (DOCUSATE) [Concomitant]
     Active Substance: DOCUSATE
     Indication: CONSTIPATION
     Dosage: 200 MILLIGRAM DAILY; 100 MG GEL CAPSULE TWICE A DAY BY MOUTH
     Dates: start: 201611
  2. ADVIL [Concomitant]
     Active Substance: IBUPROFEN
     Indication: PAIN
     Dosage: 1 TO 2 TABLETS, BY MOUTH, AT LEAST EVERY 4 HOURS; AS NEEDED, NOT ON A DAILY BASIS, TAKEN FOR YEARS
  3. MULTIVITAMIN [Concomitant]
     Active Substance: VITAMINS
     Indication: ROUTINE HEALTH MAINTENANCE
  4. PRILOSEC [Concomitant]
     Active Substance: OMEPRAZOLE MAGNESIUM
     Indication: GASTROOESOPHAGEAL REFLUX DISEASE
     Dosage: 20 MILLIGRAM DAILY; BEEN SINCE HER EARLY 6O^S, 5 PLUS YEARS; BY MOUTH
  5. TYLENOL ARTHRITIS PAIN [Concomitant]
     Active Substance: ACETAMINOPHEN
     Indication: PAIN
     Dosage: PROIVDED DOSE AS 2 TABLETS, BY MOUTH AT NIGHT; TAKES MOST NIGHTS, SLEEPS BETTER, SEVERAL YEARS AGO
  6. CALCIUM [Concomitant]
     Active Substance: CALCIUM
     Indication: OSTEOPOROSIS
     Dosage: 1300MG TOTAL A DAY, TABLETS TWICE A DAY IN DIVIDED DOSES BY MOUTH
     Dates: start: 20170106
  7. HCTZ [Concomitant]
     Active Substance: HYDROCHLOROTHIAZIDE
     Indication: HYPERTENSION
     Dosage: 25 MILLIGRAM DAILY; SINCE THE AGE OF 59, 7 OR 8 YEARS
  8. LETROZOLE. [Suspect]
     Active Substance: LETROZOLE
     Indication: BREAST CANCER
     Dosage: IN THE AM BY MOUTH
     Dates: start: 20170106
  9. LISINOPRIL. [Concomitant]
     Active Substance: LISINOPRIL
     Indication: HYPERTENSION
     Dosage: 10 MILLIGRAM DAILY; SINCE THE AGE OF 59, 7 OR 8 YEARS; BY MOUTH
  10. VITAMIN D [Concomitant]
     Active Substance: CHOLECALCIFEROL
     Indication: OSTEOPOROSIS
     Dosage: 2000 UNITS A DAY, 1000MG GEL CAPSULE, AND 1,000MG WITH THE CALCIUM PREPARATIONS BY MOUTH
  11. AMOXICILLIN. [Concomitant]
     Active Substance: AMOXICILLIN
     Indication: ANTIBIOTIC PROPHYLAXIS
     Dosage: 2000 MILLIGRAM DAILY; BY MOUTH; WAS GIVEN TO HER AFTER HER ROOT CANAL BECAUSE HER WBC WAS LOW
     Dates: start: 20170323, end: 20170330

REACTIONS (3)
  - Hot flush [Unknown]
  - Hyperhidrosis [Unknown]
  - Arthralgia [Unknown]
